FAERS Safety Report 16460044 (Version 1)
Quarter: 2019Q2

REPORT INFORMATION
  Report Type: Spontaneous
  Country: CI (occurrence: CI)
  Receive Date: 20190620
  Receipt Date: 20190620
  Transmission Date: 20190711
  Serious: Yes (Death, Other)
  Sender: FDA-Public Use
  Company Number: CI-TOLMAR, INC.-TOLG20192292

PATIENT

DRUGS (2)
  1. DICLOFENAC SODIUM. [Suspect]
     Active Substance: DICLOFENAC SODIUM
     Dosage: UNKNOWN
     Route: 065
  2. DICLOFENAC SODIUM. [Suspect]
     Active Substance: DICLOFENAC SODIUM
     Indication: PRODUCT USED FOR UNKNOWN INDICATION
     Dosage: UNKNOWN
     Route: 048

REACTIONS (2)
  - Toxic epidermal necrolysis [Fatal]
  - Stevens-Johnson syndrome [Recovered/Resolved]
